FAERS Safety Report 15557242 (Version 13)
Quarter: 2020Q1

REPORT INFORMATION
  Report Type: Spontaneous
  Country: US (occurrence: US)
  Receive Date: 20181026
  Receipt Date: 20200326
  Transmission Date: 20200409
  Serious: Yes (Hospitalization, Other)
  Sender: FDA-Public Use
  Company Number: US-ACTELION-A-NJ2018-180603

PATIENT
  Age: 46 Year
  Sex: Male
  Weight: 124.72 kg

DRUGS (5)
  1. OPSUMIT [Suspect]
     Active Substance: MACITENTAN
     Indication: PULMONARY HYPERTENSION
     Dosage: 10 MG, QD
     Route: 048
  2. REMODULIN [Suspect]
     Active Substance: TREPROSTINIL
     Indication: PRODUCT USED FOR UNKNOWN INDICATION
     Dosage: 20 MG, UNK
     Route: 065
     Dates: start: 201806
  3. ADEMPAS [Concomitant]
     Active Substance: RIOCIGUAT
     Dosage: 2.5 MG, TID
     Dates: start: 201809
  4. TORSEMIDE. [Concomitant]
     Active Substance: TORSEMIDE
     Dosage: 20 MG, QD
     Dates: start: 2018
  5. POTASSIUM [Concomitant]
     Active Substance: POTASSIUM
     Dosage: 20 MG, BID
     Dates: start: 2018

REACTIONS (23)
  - Weight decreased [Unknown]
  - Device infusion issue [Unknown]
  - Injection site swelling [Unknown]
  - Nasopharyngitis [Not Recovered/Not Resolved]
  - Decreased appetite [Unknown]
  - Catheter site haemorrhage [Unknown]
  - Catheter management [Unknown]
  - Gastroenteritis viral [Not Recovered/Not Resolved]
  - Rash [Unknown]
  - Cough [Not Recovered/Not Resolved]
  - Blister [Unknown]
  - Injection site erythema [Unknown]
  - Pulmonary congestion [Not Recovered/Not Resolved]
  - Nausea [Unknown]
  - Device dislocation [Unknown]
  - Injection site pain [Unknown]
  - Rash pustular [Unknown]
  - Diarrhoea [Unknown]
  - Wheezing [Recovering/Resolving]
  - Dermatitis contact [Unknown]
  - Nasal congestion [Not Recovered/Not Resolved]
  - Peripheral swelling [Recovering/Resolving]
  - Alopecia [Unknown]

NARRATIVE: CASE EVENT DATE: 201811
